FAERS Safety Report 10620941 (Version 2)
Quarter: 2014Q4

REPORT INFORMATION
  Report Type: Report from Study
  Country: US (occurrence: US)
  Receive Date: 20141202
  Receipt Date: 20141202
  Transmission Date: 20150529
  Serious: Yes (Other)
  Sender: FDA-Public Use
  Company Number: US-BAYER-2014-122828

PATIENT
  Age: 46 Year
  Sex: Female

DRUGS (2)
  1. STIVARGA [Suspect]
     Active Substance: REGORAFENIB
     Indication: COLON CANCER
     Dosage: 80MG, DAILY
     Route: 048
     Dates: start: 20141031
  2. STIVARGA [Suspect]
     Active Substance: REGORAFENIB
     Indication: COLON CANCER
     Dosage: 120 MG, DAILY
     Route: 048
     Dates: start: 20140725, end: 20141030

REACTIONS (10)
  - Dysphonia [None]
  - Glossodynia [None]
  - Headache [None]
  - Pain in extremity [None]
  - Oral pain [None]
  - Decreased appetite [None]
  - Fatigue [None]
  - Blood pressure increased [None]
  - Oropharyngeal pain [None]
  - Weight decreased [None]

NARRATIVE: CASE EVENT DATE: 20140728
